FAERS Safety Report 8721971 (Version 2)
Quarter: 2012Q4

REPORT INFORMATION
  Report Type: 
  Country: CA (occurrence: CA)
  Receive Date: 20120814
  Receipt Date: 20121121
  Transmission Date: 20130627
  Serious: Yes (Other)
  Sender: FDA-Public Use
  Company Number: CA-GENZYME-FLUD-1001535

PATIENT
  Age: 71 Year
  Sex: Male

DRUGS (10)
  1. FLUDARA [Suspect]
     Indication: CHRONIC LYMPHOCYTIC LEUKAEMIA
     Dosage: 60 mg, for 3 days
     Route: 048
     Dates: start: 20120626, end: 201206
  2. FLUDARA [Suspect]
     Dosage: 60 mg, for 3 days
     Route: 048
     Dates: start: 20120728, end: 20120730
  3. ZYLOPRIM [Concomitant]
     Indication: GOUT
     Dosage: 300 mg, bid
     Route: 065
     Dates: start: 20120626, end: 2012
  4. APO-NAPROXEN [Concomitant]
     Indication: ANTIINFLAMMATORY THERAPY
     Dosage: 500 mg, bid
     Route: 065
     Dates: start: 20120619
  5. APO-TRAMADOL/ACET [Concomitant]
     Indication: PRODUCT USED FOR UNKNOWN INDICATION
     Dosage: 2 DF, tid
     Route: 065
  6. SYNTHROID [Concomitant]
     Indication: PRODUCT USED FOR UNKNOWN INDICATION
     Dosage: 0.025 mg, qd
     Route: 065
     Dates: start: 20120616
  7. APO-SIMVASTATIN [Concomitant]
     Indication: PRODUCT USED FOR UNKNOWN INDICATION
     Dosage: 40 mg, qd
     Route: 065
     Dates: start: 20120616
  8. ACETYLCYSTEINE [Concomitant]
     Indication: PRODUCT USED FOR UNKNOWN INDICATION
     Dosage: 20 mg/ml, UNK (3 ml twice a day for 48 hrs)
     Route: 065
     Dates: start: 20120605
  9. PMS-PROCHLORPERAZINE [Concomitant]
     Indication: NAUSEA
     Dosage: 10 mg, UNK (1/2 to 1 tablet every 4 hrs as required)
     Route: 065
  10. JAMP-CALCIUM [Concomitant]
     Indication: PRODUCT USED FOR UNKNOWN INDICATION
     Dosage: 1 DF, bid
     Route: 065

REACTIONS (2)
  - Troponin increased [Not Recovered/Not Resolved]
  - Haemolytic anaemia [Unknown]
